FAERS Safety Report 17397701 (Version 1)
Quarter: 2020Q1

REPORT INFORMATION
  Report Type: Report from Study
  Country: CA (occurrence: CA)
  Receive Date: 20200210
  Receipt Date: 20200210
  Transmission Date: 20200409
  Serious: Yes (Other)
  Sender: FDA-Public Use
  Company Number: CA-JNJFOC-20200200933

PATIENT
  Age: 67 Year
  Sex: Male
  Weight: 107.9 kg

DRUGS (1)
  1. REMICADE [Suspect]
     Active Substance: INFLIXIMAB
     Indication: CROHN^S DISEASE
     Route: 042
     Dates: start: 20151215

REACTIONS (7)
  - Infusion related reaction [Unknown]
  - Blood pressure increased [Unknown]
  - Pain [Unknown]
  - Muscle spasms [Unknown]
  - Chest discomfort [Unknown]
  - Chills [Unknown]
  - Hot flush [Unknown]

NARRATIVE: CASE EVENT DATE: 20200130
